FAERS Safety Report 8311352-4 (Version None)
Quarter: 2012Q2

REPORT INFORMATION
  Report Type: 
  Country: None (occurrence: None)
  Receive Date: 20120425
  Receipt Date: 20120423
  Transmission Date: 20120825
  Serious: Yes (Hospitalization)
  Sender: FDA-Public Use
  Company Number: DE-GLAXOSMITHKLINE-D0075327A

PATIENT
  Age: 26 Year
  Sex: Female

DRUGS (3)
  1. POTIGA [Suspect]
     Indication: EPILEPSY
     Route: 048
  2. VALPROATE SODIUM [Concomitant]
     Indication: EPILEPSY
     Route: 048
  3. LAMOTRGINE [Concomitant]
     Indication: EPILEPSY
     Route: 048

REACTIONS (4)
  - PSYCHOMOTOR RETARDATION [None]
  - DIPLOPIA [None]
  - DIZZINESS [None]
  - GAIT DISTURBANCE [None]
